FAERS Safety Report 5586318-8 (Version None)
Quarter: 2008Q1

REPORT INFORMATION
  Report Type: 
  Country: None (occurrence: None)
  Receive Date: 20080110
  Receipt Date: 20071228
  Transmission Date: 20080703
  Serious: Yes (Other)
  Sender: FDA-Public Use
  Company Number: GR-BAYER-200810359GPV

PATIENT
  Age: 57 Year
  Sex: Male
  Weight: 75 kg

DRUGS (2)
  1. ULTRAVIST 300 [Suspect]
     Indication: COMPUTERISED TOMOGRAM ABDOMEN
     Route: 040
     Dates: start: 20071214, end: 20071214
  2. SONITINIB [Concomitant]
     Indication: CHEMOTHERAPY

REACTIONS (3)
  - BLOOD PRESSURE DECREASED [None]
  - LARYNGEAL OEDEMA [None]
  - RASH [None]
